FAERS Safety Report 20504122 (Version 5)
Quarter: 2022Q4

REPORT INFORMATION
  Report Type: Report from Study
  Country: IT (occurrence: IT)
  Receive Date: 20220222
  Receipt Date: 20221114
  Transmission Date: 20230113
  Serious: Yes (Death, Life-Threatening, Hospitalization, Disabling, Other)
  Sender: FDA-Public Use
  Company Number: IT-UCBSA-2020043630

PATIENT
  Age: 55 Year
  Sex: Male

DRUGS (6)
  1. LACOSAMIDE [Suspect]
     Active Substance: LACOSAMIDE
     Indication: Product used for unknown indication
     Dosage: 50MG
  2. LACOSAMIDE [Suspect]
     Active Substance: LACOSAMIDE
     Dosage: 150MG
  3. LACOSAMIDE [Suspect]
     Active Substance: LACOSAMIDE
     Dosage: 200 MILLIGRAM, 2X/DAY (BID)
     Dates: end: 2022
  4. PHENOBARBITAL SODIUM [Concomitant]
     Active Substance: PHENOBARBITAL SODIUM
     Indication: Product used for unknown indication
     Dosage: 150 MILLIGRAM, ONCE DAILY (QD)
  5. PHENYTOIN SODIUM [Concomitant]
     Active Substance: PHENYTOIN SODIUM
     Indication: Product used for unknown indication
     Dosage: 400 MILLIGRAM, ONCE DAILY (QD)
  6. COUMADIN [Concomitant]
     Active Substance: WARFARIN SODIUM
     Indication: Seizure

REACTIONS (18)
  - Death [Fatal]
  - Pneumothorax [Unknown]
  - Coma [Recovering/Resolving]
  - Resuscitation [Recovering/Resolving]
  - Arrhythmia [Recovering/Resolving]
  - Emphysema [Unknown]
  - Pulmonary embolism [Unknown]
  - Epilepsy [Recovering/Resolving]
  - General physical health deterioration [Unknown]
  - Seizure [Recovering/Resolving]
  - Heart rate increased [Unknown]
  - Wheelchair user [Unknown]
  - Weight decreased [Unknown]
  - Asthenia [Unknown]
  - Muscle atrophy [Unknown]
  - Dyspnoea [Unknown]
  - Drug level decreased [Unknown]
  - Multiple-drug resistance [Unknown]

NARRATIVE: CASE EVENT DATE: 20220101
